FAERS Safety Report 6824921-5 (Version None)
Quarter: 2010Q3

REPORT INFORMATION
  Report Type: 
  Country: None (occurrence: None)
  Receive Date: 20100708
  Receipt Date: 20061207
  Transmission Date: 20110219
  Serious: No
  Sender: FDA-Public Use
  Company Number: US-PFIZER INC-2006153704

PATIENT
  Sex: Female
  Weight: 49.9 kg

DRUGS (13)
  1. CHANTIX [Suspect]
     Indication: EX-TOBACCO USER
     Dates: start: 20061201
  2. LASIX [Concomitant]
  3. LANOXIN [Concomitant]
  4. COREG [Concomitant]
  5. PLAVIX [Concomitant]
  6. OTHER RESPIRATORY SYSTEM PRODUCTS [Concomitant]
  7. SPIRIVA [Concomitant]
  8. GLUCOSAMINE W/CHONDROITIN SULFATES [Concomitant]
  9. OSCAL [Concomitant]
  10. POTASSIUM CHLORIDE [Concomitant]
  11. PROTONIX [Concomitant]
  12. ISOSORBIDE [Concomitant]
  13. ACETYLSALICYLIC ACID [Concomitant]

REACTIONS (4)
  - CHILLS [None]
  - LETHARGY [None]
  - NAUSEA [None]
  - PAIN [None]
